FAERS Safety Report 8053000-7 (Version None)
Quarter: 2012Q1

REPORT INFORMATION
  Report Type: 
  Country: None (occurrence: None)
  Receive Date: 20120118
  Receipt Date: 20120104
  Transmission Date: 20120608
  Serious: Yes (Hospitalization)
  Sender: FDA-Public Use
  Company Number: US-AMGEN-USASP2012002619

PATIENT
  Sex: Male
  Weight: 2.72 kg

DRUGS (5)
  1. FOLIC ACID [Concomitant]
     Dosage: UNK, QD
     Route: 064
  2. PREDNISONE TAB [Concomitant]
     Dosage: 20 MG, QD
     Route: 064
  3. LOVENOX [Concomitant]
  4. ENBREL [Suspect]
     Dosage: 50 MG, QWK
     Route: 064
     Dates: start: 20020801
  5. PRENATAL                           /00231801/ [Concomitant]
     Route: 064

REACTIONS (2)
  - UMBILICAL CORD COMPRESSION [None]
  - FOETAL HEART RATE DECREASED [None]
